FAERS Safety Report 6633424-2 (Version None)
Quarter: 2010Q1

REPORT INFORMATION
  Report Type: 
  Country: None (occurrence: None)
  Receive Date: 20100312
  Receipt Date: 20090311
  Transmission Date: 20100710
  Serious: No
  Sender: FDA-Public Use
  Company Number: US-ABBOTT-09P-163-0561978-00

PATIENT

DRUGS (1)
  1. ERYTHROMYCIN [Suspect]
     Indication: TOOTH ABSCESS

REACTIONS (2)
  - CROHN'S DISEASE [None]
  - DIARRHOEA [None]
